FAERS Safety Report 7054063-8 (Version None)
Quarter: 2010Q4

REPORT INFORMATION
  Report Type: 
  Country: None (occurrence: None)
  Receive Date: 20101015
  Receipt Date: 20100929
  Transmission Date: 20110411
  Serious: Yes (Other)
  Sender: FDA-Public Use
  Company Number: 011286

PATIENT
  Age: 28 Year
  Sex: Female

DRUGS (2)
  1. BUSULFEX [Suspect]
     Indication: BONE MARROW TRANSPLANT
  2. CYCLOPHOSPHAMIDE [Concomitant]

REACTIONS (8)
  - ACUTE GRAFT VERSUS HOST DISEASE IN SKIN [None]
  - ACUTE MYELOID LEUKAEMIA RECURRENT [None]
  - CHRONIC GRAFT VERSUS HOST DISEASE [None]
  - DEHYDRATION [None]
  - DEPRESSION [None]
  - LEUKOENCEPHALOPATHY [None]
  - SCLERODERMA [None]
  - VASCULITIS CEREBRAL [None]
